FAERS Safety Report 9203305 (Version 1)
Quarter: 2013Q2

REPORT INFORMATION
  Report Type: Spontaneous
  Country: US (occurrence: US)
  Receive Date: 20130402
  Receipt Date: 20130402
  Transmission Date: 20140414
  Serious: No
  Sender: FDA-Public Use
  Company Number: US-JNJFOC-20130216159

PATIENT
  Age: 52 Year
  Sex: Male
  Weight: 79 kg

DRUGS (7)
  1. INVEGA SUSTENNA [Suspect]
     Indication: PRODUCT USED FOR UNKNOWN INDICATION
     Route: 030
     Dates: start: 20130130, end: 20130130
  2. INVEGA SUSTENNA [Suspect]
     Indication: PRODUCT USED FOR UNKNOWN INDICATION
     Route: 030
     Dates: start: 20130207
  3. HALDOL [Concomitant]
     Indication: AGITATION
     Route: 048
     Dates: start: 201301
  4. INVEGA [Concomitant]
     Indication: PRODUCT USED FOR UNKNOWN INDICATION
     Route: 048
     Dates: start: 20130124
  5. ATIVAN [Concomitant]
     Indication: AGITATION
     Route: 065
     Dates: start: 20130124
  6. SEROQUEL [Concomitant]
     Indication: PRODUCT USED FOR UNKNOWN INDICATION
     Route: 048
     Dates: start: 20130126
  7. BENADRYL [Concomitant]
     Indication: AGITATION
     Route: 065
     Dates: start: 201301

REACTIONS (3)
  - Drug ineffective [Not Recovered/Not Resolved]
  - Agitation [Not Recovered/Not Resolved]
  - Inappropriate schedule of drug administration [Unknown]
